FAERS Safety Report 5332459-X (Version None)
Quarter: 2007Q2

REPORT INFORMATION
  Report Type: 
  Country: None (occurrence: None)
  Receive Date: 20070523
  Receipt Date: 20070514
  Transmission Date: 20071010
  Serious: Yes (Hospitalization, Other)
  Sender: FDA-Public Use
  Company Number: US-ASTRAZENECA-2005UW15686

PATIENT
  Sex: Female
  Weight: 91.4 kg

DRUGS (120)
  1. SEROQUEL [Suspect]
     Route: 048
     Dates: start: 20000201, end: 20040601
  2. RISPERDAL [Suspect]
     Route: 048
     Dates: start: 20000201, end: 20040601
  3. ZYPREXA [Suspect]
     Dates: start: 20000201, end: 20040601
  4. LASIX [Suspect]
     Route: 048
     Dates: end: 20030101
  5. TEGRETOL [Suspect]
     Route: 048
     Dates: end: 20030101
  6. VIOXX [Suspect]
     Route: 048
     Dates: end: 20030101
  7. PROZAC [Concomitant]
     Indication: DEPRESSION
     Dates: start: 20051101
  8. PROZAC [Concomitant]
  9. DAYPRO [Concomitant]
  10. AMITRIPTYLINE HCL [Concomitant]
  11. MONOPRIL [Concomitant]
  12. PEPCID [Concomitant]
  13. TYLENOL [Concomitant]
  14. CHLORTHALIDONE [Concomitant]
     Route: 048
  15. SPIRONOLACTONE [Concomitant]
     Indication: ANGIOEDEMA
     Route: 048
  16. SPIRONOLACTONE [Concomitant]
     Route: 048
  17. ALPHAGAN [Concomitant]
     Indication: GLAUCOMA
     Route: 047
  18. ALPHAGAN [Concomitant]
     Route: 047
  19. PREVACID [Concomitant]
     Indication: GASTROOESOPHAGEAL REFLUX DISEASE
     Route: 048
  20. PREVACID [Concomitant]
  21. ASCORBIC ACID [Concomitant]
     Route: 048
  22. CYCLOBENZAPRINE HCL [Concomitant]
     Indication: INTERVERTEBRAL DISC DEGENERATION
     Route: 048
  23. LEXAPRO [Concomitant]
     Indication: DEPRESSION
     Route: 048
  24. VISTARIL [Concomitant]
     Indication: DEPRESSION
  25. GLUCOTROL XL [Concomitant]
     Route: 048
  26. GLUCOTROL XL [Concomitant]
     Route: 048
  27. LORAZEPAM [Concomitant]
     Indication: ANXIETY
     Dosage: PRN
     Route: 048
  28. LORAZEPAM [Concomitant]
     Route: 048
  29. EFFEXOR [Concomitant]
     Dosage: 225 MG QAM AND 150 MG HS
  30. EFFEXOR [Concomitant]
     Route: 048
  31. AMBIEN [Concomitant]
     Dosage: 1 1/2
     Route: 048
  32. AMBIEN [Concomitant]
     Route: 048
  33. FLUOCINONIDE [Concomitant]
  34. DETROL LA [Concomitant]
     Indication: URINARY INCONTINENCE
     Route: 048
  35. CLONAZEPAM [Concomitant]
     Indication: ANXIETY
     Route: 048
  36. WELLBUTRIN XL [Concomitant]
     Indication: DEPRESSION
     Route: 048
  37. WELLBUTRIN XL [Concomitant]
     Route: 048
  38. WELLBUTRIN XL [Concomitant]
     Route: 048
  39. TRAMADOL HCL [Concomitant]
     Indication: INTERVERTEBRAL DISC DEGENERATION
     Dosage: QID
     Route: 048
  40. ULTRACET [Concomitant]
     Indication: INTERVERTEBRAL DISC DEGENERATION
     Dosage: 37.5/325 MG
  41. CELEBREX [Concomitant]
     Indication: INTERVERTEBRAL DISC DEGENERATION
     Route: 048
  42. ZANAFLEX [Concomitant]
     Indication: INTERVERTEBRAL DISC DEGENERATION
     Route: 048
  43. FUROSEMIDE [Concomitant]
  44. ALLEGRA [Concomitant]
     Dosage: 60-120 MG
     Route: 048
  45. CIPRO [Concomitant]
     Route: 048
  46. DIFLUCAN [Concomitant]
     Route: 048
  47. DIFLUCAN [Concomitant]
     Route: 048
  48. BACTRIM [Concomitant]
     Dosage: 800-1600 MG
     Route: 048
  49. ACIPHEX [Concomitant]
     Dosage: SAMPLES
     Route: 048
  50. CATAFLAM [Concomitant]
     Dosage: BID-TID
     Route: 048
  51. DURAPHEN DM [Concomitant]
     Dosage: 40-20-1200 MG EVERY 12HR.
     Route: 048
  52. ELIDEL [Concomitant]
     Route: 061
  53. GUAIFENESIN [Concomitant]
     Dosage: 30-600 MG
     Route: 048
  54. HYDROXYZINE HCL [Concomitant]
     Route: 048
  55. HYDROXYZINE PAMOATE [Concomitant]
     Dosage: QID
     Route: 048
  56. LAC-HYDRIN [Concomitant]
     Route: 061
  57. MIRALAX [Concomitant]
     Route: 048
  58. MOBIC [Concomitant]
     Route: 048
  59. NAPROXEN [Concomitant]
     Route: 048
  60. NAPROXEN [Concomitant]
     Route: 048
  61. NAPROXEN [Concomitant]
     Route: 048
  62. PERCOCET [Concomitant]
     Indication: PAIN
     Dosage: 10-325 MG TID TO QID
     Route: 048
  63. NYSTATIN [Concomitant]
     Indication: GLOSSITIS
     Route: 048
  64. PHENERGAN HCL [Concomitant]
     Indication: NAUSEA
     Dosage: EVERY 6-8 HOURS
     Route: 048
  65. PHENERGAN HCL [Concomitant]
     Indication: VOMITING
     Dosage: EVERY 6-8 HOURS
     Route: 048
  66. PYRIDIUM [Concomitant]
     Route: 048
  67. TIZANIDINE HCL [Concomitant]
     Dosage: 1-2 TABS
     Route: 048
  68. TIZANIDINE HCL [Concomitant]
     Dosage: 2 TABS
     Route: 048
  69. ZITHROMAX [Concomitant]
     Route: 048
  70. CELEXA [Concomitant]
     Route: 048
  71. CELEXA [Concomitant]
     Route: 048
  72. CUTIVATE [Concomitant]
     Dosage: SAMPLES
     Dates: start: 20030920
  73. IBUPROFEN [Concomitant]
  74. K-DUR 10 [Concomitant]
     Route: 048
  75. LIDEX [Concomitant]
  76. METAMUCIL PLUS CALCIUM [Concomitant]
     Indication: CONSTIPATION
  77. METAMUCIL PLUS CALCIUM [Concomitant]
     Dosage: 2 CAP IN THE AM AND 2 CAP IN PM
     Route: 048
  78. SINGULAIR [Concomitant]
     Route: 048
  79. TRIAMTERENE [Concomitant]
     Dosage: 75-50 MG
  80. ZANTAC [Concomitant]
     Route: 048
  81. ZANTAC [Concomitant]
     Route: 048
  82. INFLUENZA [Concomitant]
     Dates: start: 20041212
  83. KLONOPIN [Concomitant]
  84. BUSPAR [Concomitant]
  85. BUSPIRONE HCL [Concomitant]
     Indication: ANXIETY
     Route: 048
  86. GEODON [Concomitant]
     Indication: DISSOCIATIVE DISORDER
     Route: 048
  87. HALOPERIDOL [Concomitant]
     Dosage: 1/2 TAB OF 0.5 MG
     Route: 048
  88. TYLENOL EXTRA STRENGTH [Concomitant]
     Indication: INSOMNIA
     Dosage: 500-25 MG
     Route: 048
  89. DIOVAN [Concomitant]
     Route: 048
  90. LIDEX [Concomitant]
     Route: 061
  91. ATARAX [Concomitant]
  92. OXYCODONE HCL AND ACETAMINOPHEN [Concomitant]
     Dosage: 5/325 MG
     Route: 048
  93. ZELNORM [Concomitant]
  94. SENNA PLUS [Concomitant]
  95. POTASSIUM ACETATE [Concomitant]
     Route: 048
  96. TOPAMAX [Concomitant]
     Route: 048
  97. DICLOFENAC [Concomitant]
     Route: 048
  98. PANOKASE [Concomitant]
  99. MEPERIDINE HCL [Concomitant]
  100. BUPROPION HYDROCHLORIDE [Concomitant]
  101. GEMFIBROZIL [Concomitant]
  102. LUNESTA [Concomitant]
     Route: 048
  103. LUNESTA [Concomitant]
     Route: 048
  104. SONATA [Concomitant]
  105. NORTRIPTYLINE HCL [Concomitant]
  106. PLAVIX [Concomitant]
     Route: 048
  107. NEURONTIN [Concomitant]
     Route: 048
  108. MIRALAX [Concomitant]
  109. HYDROXYZINE PAM [Concomitant]
     Route: 048
  110. SULFAMETHOXAZOLE + TRIMETHOPRIM [Concomitant]
  111. CELEBREX [Concomitant]
  112. ABILIFY [Concomitant]
     Route: 048
  113. ULTRACET [Concomitant]
  114. TIZANIDINE HCL [Concomitant]
  115. DETROL LA [Concomitant]
     Route: 048
  116. THIORIDAZINE HCL [Concomitant]
     Route: 048
  117. SF 5000 PLUS CREAM [Concomitant]
  118. GARPENTIN [Concomitant]
  119. KEPPRA [Concomitant]
  120. LYRICA [Concomitant]

REACTIONS (8)
  - ABDOMINAL PAIN [None]
  - CEREBROVASCULAR ACCIDENT [None]
  - CHEST PAIN [None]
  - DIABETES MELLITUS [None]
  - DIABETIC NEUROPATHY [None]
  - PANCREATITIS CHRONIC [None]
  - POLYP COLORECTAL [None]
  - SUICIDAL BEHAVIOUR [None]
